FAERS Safety Report 9090033 (Version 3)
Quarter: 2013Q2

REPORT INFORMATION
  Report Type: Report from Study
  Country: BR (occurrence: BR)
  Receive Date: 20130201
  Receipt Date: 20130620
  Transmission Date: 20140414
  Serious: Yes (Hospitalization, Other)
  Sender: FDA-Public Use
  Company Number: BR-ABBOTT-13P-020-1042870-00

PATIENT
  Age: 66 Year
  Sex: Female
  Weight: 79 kg

DRUGS (8)
  1. HUMIRA [Suspect]
     Indication: RHEUMATOID ARTHRITIS
     Route: 058
     Dates: start: 201207, end: 20120803
  2. CAPTOPRIL [Concomitant]
     Indication: BLOOD PRESSURE ABNORMAL
     Route: 048
     Dates: start: 1995
  3. METHYLDOPA [Concomitant]
     Indication: BLOOD PRESSURE ABNORMAL
     Route: 048
     Dates: start: 2011
  4. RAMIPRIL [Concomitant]
     Indication: SLEEP DISORDER THERAPY
     Route: 048
     Dates: start: 201208
  5. FLUOXETINE [Concomitant]
     Indication: DEPRESSION
     Route: 048
     Dates: start: 201208
  6. PREDNISONE [Concomitant]
     Indication: PAIN
     Route: 048
     Dates: start: 201208
  7. DIHYDROERGOTAMINE MESILATE + DIPYRONE + CAFFEINE [Concomitant]
     Indication: HEADACHE
     Dates: start: 2008
  8. OMPRAZOLE [Concomitant]
     Indication: GASTRIC DISORDER
     Route: 048
     Dates: start: 201208

REACTIONS (5)
  - Decreased appetite [Recovering/Resolving]
  - Renal cancer [Unknown]
  - Vomiting [Recovered/Resolved]
  - Nausea [Unknown]
  - Arthralgia [Unknown]
